FAERS Safety Report 9566279 (Version 1)
Quarter: 2013Q3

REPORT INFORMATION
  Report Type: Spontaneous
  Country: US (occurrence: US)
  Receive Date: 20130930
  Receipt Date: 20130930
  Transmission Date: 20140515
  Serious: No
  Sender: FDA-Public Use
  Company Number: UM-ASTRAZENECA-2013SE54509

PATIENT
  Age: 62 Year
  Sex: Female

DRUGS (3)
  1. BRILINTA [Suspect]
     Indication: PERCUTANEOUS CORONARY INTERVENTION
     Route: 048
     Dates: start: 20130418, end: 20130515
  2. PLAVIX [Suspect]
     Route: 065
  3. ASPIRIN [Concomitant]
     Indication: PROPHYLAXIS
     Route: 048
     Dates: start: 20130418

REACTIONS (2)
  - Dyspnoea [Recovered/Resolved]
  - Intentional drug misuse [Unknown]
